FAERS Safety Report 7132543-4 (Version None)
Quarter: 2010Q4

REPORT INFORMATION
  Report Type: 
  Country: None (occurrence: None)
  Receive Date: 20101202
  Receipt Date: 20101119
  Transmission Date: 20110411
  Serious: Yes (Other)
  Sender: FDA-Public Use
  Company Number: PHHY2010US79413

PATIENT
  Sex: Female

DRUGS (1)
  1. GLEEVEC [Suspect]
     Indication: GASTROINTESTINAL CARCINOMA
     Dosage: 400 MG/DAY
     Route: 048
     Dates: start: 20100521

REACTIONS (1)
  - THYROID OPERATION [None]
